FAERS Safety Report 13190758 (Version 2)
Quarter: 2017Q1

REPORT INFORMATION
  Report Type: Spontaneous
  Country: US (occurrence: US)
  Receive Date: 20170206
  Receipt Date: 20170207
  Transmission Date: 20170428
  Serious: No
  Sender: FDA-Public Use
  Company Number: US-GILEAD-2017-0253698

PATIENT

DRUGS (1)
  1. HARVONI [Suspect]
     Active Substance: LEDIPASVIR\SOFOSBUVIR
     Indication: PRODUCT USED FOR UNKNOWN INDICATION
     Dosage: UNK
     Route: 065
     Dates: start: 201603

REACTIONS (7)
  - Breath odour [Unknown]
  - Speech disorder [Unknown]
  - Disorientation [Unknown]
  - Panic attack [Unknown]
  - Anxiety [Unknown]
  - Oral disorder [Not Recovered/Not Resolved]
  - Amnesia [Not Recovered/Not Resolved]
